FAERS Safety Report 26046145 (Version 1)
Quarter: 2025Q4

REPORT INFORMATION
  Report Type: Spontaneous
  Country: US (occurrence: US)
  Receive Date: 20251114
  Receipt Date: 20251114
  Transmission Date: 20260117
  Serious: Yes (Life-Threatening, Hospitalization, Other)
  Sender: UNICHEM
  Company Number: US-UNICHEM LABORATORIES LIMITED-UNI-2025-US-003726

PATIENT

DRUGS (5)
  1. TIZANIDINE [Suspect]
     Active Substance: TIZANIDINE
     Indication: Product used for unknown indication
     Dosage: 80 MILLIGRAM, QD
     Route: 065
  2. TIZANIDINE [Suspect]
     Active Substance: TIZANIDINE
     Dosage: 12 MILLIGRAM, QD
     Route: 048
  3. TIZANIDINE [Suspect]
     Active Substance: TIZANIDINE
     Dosage: 32 MILLIGRAM, QD
     Route: 048
  4. TIZANIDINE [Suspect]
     Active Substance: TIZANIDINE
     Dosage: UNK
     Route: 065
  5. TIZANIDINE [Suspect]
     Active Substance: TIZANIDINE
     Dosage: UNK
     Route: 048

REACTIONS (6)
  - Drug use disorder [Unknown]
  - Agitation [Not Recovered/Not Resolved]
  - Discomfort [Not Recovered/Not Resolved]
  - Anxiety [Not Recovered/Not Resolved]
  - Withdrawal syndrome [Not Recovered/Not Resolved]
  - Maternal exposure during pregnancy [Unknown]
